FAERS Safety Report 19746998 (Version 1)
Quarter: 2021Q3

REPORT INFORMATION
  Report Type: Spontaneous
  Country: US (occurrence: US)
  Receive Date: 20210825
  Receipt Date: 20210825
  Transmission Date: 20211014
  Serious: No
  Sender: FDA-Public Use
  Company Number: US-GALDERMA-US2021015256

PATIENT

DRUGS (5)
  1. DIFFERIN GEL [Suspect]
     Active Substance: ADAPALENE
     Indication: PRODUCT USE IN UNAPPROVED INDICATION
  2. DIFFERIN GEL [Suspect]
     Active Substance: ADAPALENE
     Indication: ACNE CYSTIC
     Dosage: 1 DOSAGE FORM
     Route: 061
  3. DIFFERIN DARK SPOT CORRECTING SERUM [Suspect]
     Active Substance: HYDROQUINONE
     Indication: PRODUCT USED FOR UNKNOWN INDICATION
     Dosage: 1 DOSAGE FORM
     Route: 061
  4. DIFFERIN GEL [Suspect]
     Active Substance: ADAPALENE
     Indication: ACNE
  5. DIFFERIN RESTORATIVE NIGHT MOISTURIZER [Suspect]
     Active Substance: COSMETICS
     Indication: DRY SKIN
     Dosage: 1 DOSAGE FORM
     Route: 061

REACTIONS (4)
  - Condition aggravated [Unknown]
  - Product use in unapproved indication [Recovered/Resolved]
  - Sensitive skin [Unknown]
  - Dry skin [Unknown]
